FAERS Safety Report 5777083-X (Version None)
Quarter: 2008Q2

REPORT INFORMATION
  Report Type: 
  Country: None (occurrence: None)
  Receive Date: 20080617
  Receipt Date: 20080617
  Transmission Date: 20081010
  Serious: No
  Sender: FDA-Public Use
  Company Number: None

PATIENT
  Age: 90 Year
  Sex: Male

DRUGS (7)
  1. POTASSIUM CHLORIDE [Suspect]
     Dosage: 10 MEQ PO QD
     Route: 048
     Dates: start: 20080422
  2. METOPROLOL [Concomitant]
  3. LEVOFLOXACIN [Concomitant]
  4. HYDROMORPHONE HCL [Concomitant]
  5. FUROSEMIDE [Concomitant]
  6. DOCUSATE [Concomitant]
  7. AMIODARONE HCL [Concomitant]

REACTIONS (5)
  - ABDOMINAL PAIN [None]
  - BLOOD CREATININE INCREASED [None]
  - BLOOD POTASSIUM INCREASED [None]
  - CARDIAC ARREST [None]
  - PROCEDURAL COMPLICATION [None]
